FAERS Safety Report 4658898-8 (Version None)
Quarter: 2005Q2

REPORT INFORMATION
  Report Type: 
  Country: None (occurrence: None)
  Receive Date: 20050511
  Receipt Date: 20050427
  Transmission Date: 20051028
  Serious: Yes (Death)
  Sender: FDA-Public Use
  Company Number: CH-JNJFOC-20050501114

PATIENT
  Sex: Female
  Weight: 60 kg

DRUGS (11)
  1. RISPERDAL [Suspect]
     Indication: DRUG USE FOR UNKNOWN INDICATION
     Dosage: 1.5 - 2.5 MG
     Route: 049
     Dates: start: 20040420, end: 20040910
  2. BUSPAR [Suspect]
     Indication: DRUG USE FOR UNKNOWN INDICATION
     Route: 049
  3. REMINYL [Suspect]
     Route: 049
  4. REMINYL [Suspect]
     Indication: DRUG USE FOR UNKNOWN INDICATION
     Dosage: 8-16 MG
     Route: 049
  5. CONVULEX [Suspect]
     Indication: DRUG USE FOR UNKNOWN INDICATION
     Dosage: 100-200 MG
     Route: 049
  6. REMERON [Suspect]
     Route: 049
  7. REMERON [Suspect]
     Indication: ANTIDEPRESSANT THERAPY
     Route: 049
  8. CIPRALEX [Suspect]
     Indication: DRUG USE FOR UNKNOWN INDICATION
     Route: 049
  9. PARAGAR [Suspect]
     Route: 049
  10. PARAGAR [Suspect]
     Route: 049
  11. PARAGAR [Suspect]
     Indication: DRUG USE FOR UNKNOWN INDICATION
     Route: 049

REACTIONS (9)
  - AGITATION [None]
  - ATRIAL FIBRILLATION [None]
  - BLOOD PRESSURE FLUCTUATION [None]
  - CEREBROVASCULAR ACCIDENT [None]
  - COMA [None]
  - DEPRESSION [None]
  - HEMIPARESIS [None]
  - SALIVARY HYPERSECRETION [None]
  - SLEEP DISORDER [None]
